FAERS Safety Report 15684268 (Version 1)
Quarter: 2018Q4

REPORT INFORMATION
  Report Type: Spontaneous
  Country: BE (occurrence: BE)
  Receive Date: 20181204
  Receipt Date: 20181204
  Transmission Date: 20190205
  Serious: Yes (Other)
  Sender: FDA-Public Use
  Company Number: BE-ELI_LILLY_AND_COMPANY-BE201811013117

PATIENT
  Age: 71 Year
  Sex: Male

DRUGS (2)
  1. MEDROL SPECIFIC [Concomitant]
     Indication: PRODUCT USED FOR UNKNOWN INDICATION
  2. TRULICITY [Suspect]
     Active Substance: DULAGLUTIDE
     Indication: PRODUCT USED FOR UNKNOWN INDICATION
     Dosage: 1.5 MG, UNKNOWN
     Route: 065
     Dates: start: 201806

REACTIONS (3)
  - Feeding disorder [Unknown]
  - Weight decreased [Unknown]
  - Impaired gastric emptying [Unknown]
